FAERS Safety Report 6524550-7 (Version None)
Quarter: 2010Q1

REPORT INFORMATION
  Report Type: 
  Country: None (occurrence: None)
  Receive Date: 20100104
  Receipt Date: 20091231
  Transmission Date: 20100710
  Serious: Yes (Hospitalization)
  Sender: FDA-Public Use
  Company Number: FR-ROCHE-677253

PATIENT
  Sex: Female

DRUGS (7)
  1. ROCEPHIN [Suspect]
     Indication: DRUG USE FOR UNKNOWN INDICATION
     Route: 042
     Dates: start: 20090501
  2. ROCEPHIN [Suspect]
     Route: 042
     Dates: start: 20090630
  3. PREVISCAN [Concomitant]
     Route: 048
  4. TAHOR [Concomitant]
     Route: 048
  5. ISOPTIN [Concomitant]
     Route: 048
  6. HYPERIUM [Concomitant]
     Route: 048
  7. DELURSAN [Concomitant]
     Route: 048

REACTIONS (2)
  - SERUM SICKNESS [None]
  - SKIN TEST NEGATIVE [None]
